FAERS Safety Report 8226857-4 (Version None)
Quarter: 2012Q1

REPORT INFORMATION
  Report Type: 
  Country: None (occurrence: None)
  Receive Date: 20120322
  Receipt Date: 20120312
  Transmission Date: 20120608
  Serious: Yes (Hospitalization, Other)
  Sender: FDA-Public Use
  Company Number: US-BAYER-2011-074990

PATIENT
  Age: 22 Year
  Sex: Female
  Weight: 62.585 kg

DRUGS (12)
  1. YAZ [Suspect]
     Indication: PREMENSTRUAL SYNDROME
     Dosage: UNK
     Route: 048
     Dates: start: 20060101, end: 20090101
  2. AZITHROMYCIN [Concomitant]
     Dosage: 250 MG, UNK
     Dates: start: 20081223
  3. TORADOL [Concomitant]
     Dosage: 60 MG, UNK
     Route: 030
     Dates: start: 20090218
  4. PROMETHAZINE [Concomitant]
     Dosage: 25 MG, UNK
     Dates: start: 20080801
  5. ONDANSETRON [Concomitant]
     Indication: VOMITING
  6. DEPO-MEDROL [Concomitant]
     Dosage: 40 MG, UNK
     Route: 030
     Dates: start: 20090218
  7. NEXIUM [Concomitant]
     Dosage: 40 MG, UNK
     Dates: start: 20081222
  8. CHOLESTYRAMINE [Concomitant]
     Dosage: UNK
     Dates: start: 20090114
  9. DICYCLOMINE [Concomitant]
     Dosage: 20 MG, TID
     Dates: start: 20081222
  10. ONDANSETRON [Concomitant]
     Indication: NAUSEA
     Dosage: UNK
     Dates: start: 20080908
  11. ZOLPIDEM TARTRATE [Concomitant]
     Dosage: 100 MG, QD
     Dates: start: 20080416
  12. MAXALT [Concomitant]

REACTIONS (3)
  - BILIARY DYSKINESIA [None]
  - GALLBLADDER INJURY [None]
  - CHOLECYSTITIS CHRONIC [None]
